FAERS Safety Report 7719664-X (Version None)
Quarter: 2011Q3

REPORT INFORMATION
  Report Type: 
  Country: None (occurrence: None)
  Receive Date: 20110830
  Receipt Date: 20110826
  Transmission Date: 20111222
  Serious: Yes (Hospitalization, Disabling, Other)
  Sender: FDA-Public Use
  Company Number: US-MERCK-1105USA00388

PATIENT
  Age: 49 Year
  Sex: Female
  Weight: 85 kg

DRUGS (4)
  1. VITAMIN D (UNSPECIFIED) [Concomitant]
     Route: 065
     Dates: start: 19960101
  2. FOSAMAX [Suspect]
     Route: 048
     Dates: end: 20080901
  3. FOSAMAX [Suspect]
     Indication: OSTEOPOROSIS
     Route: 048
     Dates: start: 19911201
  4. CALCIUM (UNSPECIFIED) [Concomitant]
     Route: 065
     Dates: start: 19960101

REACTIONS (17)
  - FEMUR FRACTURE [None]
  - BLOOD CHOLESTEROL INCREASED [None]
  - ENTEROBIASIS [None]
  - FALL [None]
  - ANKLE FRACTURE [None]
  - KNEE DEFORMITY [None]
  - OSTEOARTHRITIS [None]
  - VULVOVAGINAL PRURITUS [None]
  - BURSITIS [None]
  - DRUG HYPERSENSITIVITY [None]
  - OSTEONECROSIS [None]
  - LOSS OF CONSCIOUSNESS [None]
  - TENDONITIS [None]
  - OEDEMA PERIPHERAL [None]
  - FURUNCLE [None]
  - HERPES ZOSTER [None]
  - CONTUSION [None]
